FAERS Safety Report 5850845-6 (Version None)
Quarter: 2008Q3

REPORT INFORMATION
  Report Type: 
  Country: None (occurrence: None)
  Receive Date: 20080819
  Receipt Date: 20080819
  Transmission Date: 20090109
  Serious: Yes (Other)
  Sender: FDA-Public Use
  Company Number: None

PATIENT
  Age: 37 Year
  Sex: Female
  Weight: 74.8435 kg

DRUGS (2)
  1. TRAMADOL HCL [Suspect]
     Indication: PELVIC PAIN
     Dosage: 1 TABLET  Q 6 HRS PO (DURATION: 2 DOSES)
     Route: 048
     Dates: start: 20080501, end: 20080502
  2. TRAMADOL HCL [Suspect]
     Indication: UTERINE LEIOMYOMA
     Dosage: 1 TABLET  Q 6 HRS PO (DURATION: 2 DOSES)
     Route: 048
     Dates: start: 20080501, end: 20080502

REACTIONS (2)
  - HEART RATE INCREASED [None]
  - PALPITATIONS [None]
